FAERS Safety Report 10048308 (Version 2)
Quarter: 2014Q1

REPORT INFORMATION
  Report Type: Spontaneous
  Country: US (occurrence: US)
  Receive Date: 20140331
  Receipt Date: 20140331
  Transmission Date: 20141002
  Serious: Yes (Hospitalization, Disabling, Other)
  Sender: FDA-Public Use
  Company Number: US-009507513-1205USA02811

PATIENT
  Sex: Female

DRUGS (7)
  1. FOSAMAX [Suspect]
     Indication: OSTEOPOROSIS
     Dosage: 10 MG, UNK
     Route: 048
     Dates: start: 199809, end: 200312
  2. FOSAMAX [Suspect]
     Dosage: 70 MG, UNK
     Route: 048
     Dates: start: 200401, end: 200802
  3. FOSAMAX [Suspect]
     Dosage: UNK
     Route: 048
     Dates: start: 20080325
  4. CALCIUM (UNSPECIFIED) [Concomitant]
     Dosage: 2 TABS A DAY
     Route: 048
     Dates: start: 1994
  5. VITAMINS (UNSPECIFIED) [Concomitant]
     Dosage: 2 TABS A DAY
     Route: 048
     Dates: start: 1994
  6. VITAMIN D (UNSPECIFIED) [Concomitant]
     Dosage: 2 TABS A DAY
     Route: 048
     Dates: start: 1994
  7. OMEGA-3 MARINE TRIGLYCERIDES [Concomitant]
     Dosage: 2 TABS A DAY
     Route: 048
     Dates: start: 1994

REACTIONS (11)
  - Femur fracture [Unknown]
  - Intramedullary rod insertion [Unknown]
  - Low turnover osteopathy [Unknown]
  - Osteoporosis [Unknown]
  - Multiple fractures [Unknown]
  - Tibia fracture [Unknown]
  - Open reduction of fracture [Unknown]
  - Caesarean section [Unknown]
  - Neck injury [Unknown]
  - Protein S deficiency [Unknown]
  - Hypothyroidism [Unknown]
